FAERS Safety Report 13460076 (Version 1)
Quarter: 2017Q2

REPORT INFORMATION
  Report Type: Spontaneous
  Country: US (occurrence: US)
  Receive Date: 20170420
  Receipt Date: 20170420
  Transmission Date: 20170830
  Serious: No
  Sender: FDA-Public Use
  Company Number: US-JNJFOC-20170418517

PATIENT
  Age: 15 Year
  Sex: Female

DRUGS (1)
  1. DOXIL [Suspect]
     Active Substance: DOXORUBICIN HYDROCHLORIDE
     Indication: DESMOID TUMOUR
     Dosage: RECEIVED 2 CYCLES
     Route: 065
     Dates: start: 20150611, end: 20150912

REACTIONS (3)
  - Product use in unapproved indication [Unknown]
  - Adverse drug reaction [Unknown]
  - Off label use [Unknown]

NARRATIVE: CASE EVENT DATE: 2015
